FAERS Safety Report 7637286-6 (Version None)
Quarter: 2011Q3

REPORT INFORMATION
  Report Type: 
  Country: None (occurrence: None)
  Receive Date: 20110726
  Receipt Date: 20110720
  Transmission Date: 20111222
  Serious: Yes (Hospitalization, Other)
  Sender: FDA-Public Use
  Company Number: US-PFIZER INC-2010100865

PATIENT
  Sex: Male

DRUGS (1)
  1. CHANTIX [Suspect]
     Indication: SMOKING CESSATION THERAPY
     Dosage: STARTER MONTH PACK
     Dates: start: 20070101, end: 20080801

REACTIONS (11)
  - FEMUR FRACTURE [None]
  - RIB FRACTURE [None]
  - LOSS OF CONSCIOUSNESS [None]
  - HIP FRACTURE [None]
  - AORTIC INJURY [None]
  - SCAR [None]
  - TRAUMATIC LUNG INJURY [None]
  - HAEMOTHORAX [None]
  - PNEUMOTHORAX [None]
  - ROAD TRAFFIC ACCIDENT [None]
  - NIGHTMARE [None]
